FAERS Safety Report 16879804 (Version 1)
Quarter: 2019Q4

REPORT INFORMATION
  Report Type: Spontaneous
  Country: US (occurrence: US)
  Receive Date: 20191003
  Receipt Date: 20191003
  Transmission Date: 20200122
  Serious: No
  Sender: FDA-Public Use
  Company Number: US-JNJFOC-20190933899

PATIENT
  Age: 46 Year
  Sex: Female
  Weight: 49.49 kg

DRUGS (1)
  1. WOMENS ROGAINE UNSCENTED [Suspect]
     Active Substance: MINOXIDIL
     Indication: ALOPECIA
     Dosage: AS DIRECTED 1X DAILY
     Route: 061
     Dates: start: 20190905, end: 20190920

REACTIONS (4)
  - Headache [Recovered/Resolved]
  - Application site erythema [Recovering/Resolving]
  - Application site inflammation [Recovering/Resolving]
  - Application site pain [Recovered/Resolved]

NARRATIVE: CASE EVENT DATE: 20190906
